FAERS Safety Report 7893654-9 (Version None)
Quarter: 2011Q4

REPORT INFORMATION
  Report Type: 
  Country: None (occurrence: None)
  Receive Date: 20111104
  Receipt Date: 20111027
  Transmission Date: 20120403
  Serious: Yes (Hospitalization)
  Sender: FDA-Public Use
  Company Number: TR-GLAXOSMITHKLINE-B0760519A

PATIENT
  Sex: Female
  Weight: 59 kg

DRUGS (1)
  1. LAMIVUDINE-HBV [Suspect]
     Indication: HEPATITIS B
     Dosage: 100MG PER DAY
     Route: 048
     Dates: start: 20110909, end: 20110923

REACTIONS (1)
  - RASH MACULO-PAPULAR [None]
